FAERS Safety Report 10167612 (Version 1)
Quarter: 2014Q2

REPORT INFORMATION
  Report Type: Spontaneous
  Country: JP (occurrence: JP)
  Receive Date: 20140512
  Receipt Date: 20140512
  Transmission Date: 20141212
  Serious: Yes (Death)
  Sender: FDA-Public Use
  Company Number: JP-ASTELLAS-2014US005112

PATIENT
  Age: 70 Year
  Sex: Male

DRUGS (2)
  1. AMPHOTERICIN B [Suspect]
     Indication: ZYGOMYCOSIS
     Route: 042
  2. VORICONAZOLE [Suspect]
     Indication: ZYGOMYCOSIS
     Route: 042

REACTIONS (1)
  - Drug ineffective [Fatal]
